FAERS Safety Report 7544106-7 (Version None)
Quarter: 2011Q2

REPORT INFORMATION
  Report Type: 
  Country: None (occurrence: None)
  Receive Date: 20110613
  Receipt Date: 20051229
  Transmission Date: 20111010
  Serious: Yes (Hospitalization)
  Sender: FDA-Public Use
  Company Number: PHHO2005VE15958

PATIENT
  Sex: Male

DRUGS (7)
  1. IRBESARTAN AND HYDROCHLOROTHIAZIDE [Suspect]
     Dates: start: 20051003
  2. ADALAT [Concomitant]
  3. DIOVAN HCT [Suspect]
     Dosage: 160 MG
     Dates: start: 20050301
  4. ALLOPURINOL [Concomitant]
  5. HYPERIUM [Concomitant]
  6. BISOPROLOL FUMARATE [Concomitant]
     Dosage: 2.5 MG
  7. ASCRIPTIN [Concomitant]

REACTIONS (4)
  - SOMNOLENCE [None]
  - ASTHENIA [None]
  - RENAL IMPAIRMENT [None]
  - RENAL DISORDER [None]
